FAERS Safety Report 9292177 (Version 3)
Quarter: 2013Q4

REPORT INFORMATION
  Report Type: Spontaneous
  Country: CA (occurrence: CA)
  Receive Date: 20130516
  Receipt Date: 20131004
  Transmission Date: 20140711
  Serious: Yes (Hospitalization, Other)
  Sender: FDA-Public Use
  Company Number: CA-JNJFOC-20130506368

PATIENT
  Age: 60 Year
  Sex: Male
  Weight: 61.1 kg

DRUGS (21)
  1. XARELTO [Suspect]
     Indication: THROMBOSIS PROPHYLAXIS
     Route: 048
  2. XARELTO [Suspect]
     Indication: KNEE ARTHROPLASTY
     Route: 048
  3. NEVIRAPINE [Interacting]
     Indication: HIV INFECTION
     Route: 065
  4. AMLODIPINE [Concomitant]
     Route: 065
  5. METOPROLOL [Concomitant]
     Route: 065
  6. LISINOPRIL [Concomitant]
     Route: 065
  7. DALTEPARIN [Concomitant]
     Indication: THROMBOSIS PROPHYLAXIS
     Dosage: POST OPERATIVE DAY 1 AND 2
     Route: 058
  8. DALTEPARIN [Concomitant]
     Indication: THROMBOSIS PROPHYLAXIS
     Dosage: POST-OPERATIVE
     Route: 058
  9. DALTEPARIN [Concomitant]
     Indication: KNEE ARTHROPLASTY
     Dosage: POST OPERATIVE DAY 1 AND 2
     Route: 058
  10. DALTEPARIN [Concomitant]
     Indication: KNEE ARTHROPLASTY
     Dosage: POST-OPERATIVE
     Route: 058
  11. ATORVASTATIN [Concomitant]
     Route: 065
  12. ACETYLSALICYLIC ACID [Concomitant]
     Route: 065
  13. CELECOXIB [Concomitant]
     Route: 065
  14. OMEPRAZOLE [Concomitant]
     Route: 065
  15. GABAPENTIN [Concomitant]
     Route: 065
  16. LAMOTRIGINE [Concomitant]
     Route: 065
  17. ZIDOVUDINE [Concomitant]
     Indication: HIV INFECTION
     Route: 065
  18. LAMIVUDINE [Concomitant]
     Indication: HIV INFECTION
     Route: 065
  19. LAMIVUDINE [Concomitant]
     Indication: HIV INFECTION
     Route: 065
  20. HYDROCHLOROTHIAZIDE [Concomitant]
     Route: 065
  21. ABACAVIR [Concomitant]
     Route: 065

REACTIONS (4)
  - Deep vein thrombosis [Unknown]
  - Pulmonary embolism [Unknown]
  - Drug interaction [Recovered/Resolved]
  - Anticoagulation drug level below therapeutic [Recovered/Resolved]
